FAERS Safety Report 4795403-X (Version None)
Quarter: 2005Q4

REPORT INFORMATION
  Report Type: 
  Country: None (occurrence: None)
  Receive Date: 20051006
  Receipt Date: 20051006
  Transmission Date: 20060501
  Serious: Yes (Other)
  Sender: FDA-Public Use
  Company Number: None

PATIENT
  Age: 42 Year
  Sex: Female

DRUGS (3)
  1. ENBREL [Suspect]
     Indication: PSORIASIS
     Dosage: 50 MG SQ QWK
     Route: 058
     Dates: start: 20050301, end: 20050901
  2. CELEXA [Concomitant]
  3. ECHINACEA [Concomitant]

REACTIONS (3)
  - ASTHENIA [None]
  - BALANCE DISORDER [None]
  - HYPOAESTHESIA [None]
